FAERS Safety Report 7867694-X (Version None)
Quarter: 2011Q4

REPORT INFORMATION
  Report Type: 
  Country: None (occurrence: None)
  Receive Date: 20111028
  Receipt Date: 20111021
  Transmission Date: 20120403
  Serious: Yes (Hospitalization)
  Sender: FDA-Public Use
  Company Number: US-PFIZER INC-2011239044

PATIENT
  Age: 45 Year
  Sex: Male
  Weight: 63 kg

DRUGS (2)
  1. REVATIO [Suspect]
     Dosage: UNK
  2. REMODULIN [Suspect]
     Indication: COR PULMONALE CHRONIC
     Dosage: 2 NG/KG/MIN
     Route: 042
     Dates: start: 20110909

REACTIONS (2)
  - PAIN IN JAW [None]
  - DIARRHOEA [None]
